FAERS Safety Report 6146032-7 (Version None)
Quarter: 2009Q2

REPORT INFORMATION
  Report Type: 
  Country: None (occurrence: None)
  Receive Date: 20090407
  Receipt Date: 20090326
  Transmission Date: 20091009
  Serious: Yes (Hospitalization)
  Sender: FDA-Public Use
  Company Number: FR-ELI_LILLY_AND_COMPANY-FR200811000297

PATIENT
  Sex: Female
  Weight: 44 kg

DRUGS (4)
  1. FORTEO [Suspect]
     Indication: OSTEOPOROSIS
     Dosage: 20 UG, DAILY (1/D)
     Route: 058
     Dates: start: 20080521, end: 20080828
  2. FORTEO [Suspect]
     Dosage: 20 UG, DAILY (1/D)
     Route: 058
     Dates: start: 20080929, end: 20081001
  3. FORTEO [Suspect]
     Dosage: 20 UG, DAILY (1/D)
     Route: 058
     Dates: start: 20081205
  4. EFFEXOR [Concomitant]
     Indication: DEPRESSION
     Dosage: 1 D/F, UNKNOWN
     Route: 065
     Dates: start: 20040101

REACTIONS (5)
  - DIVERTICULAR PERFORATION [None]
  - DIVERTICULITIS [None]
  - FUNGAL INFECTION [None]
  - INTESTINAL FISTULA [None]
  - PERITONITIS [None]
